FAERS Safety Report 16336838 (Version 1)
Quarter: 2019Q2

REPORT INFORMATION
  Report Type: Spontaneous
  Country: CN (occurrence: CN)
  Receive Date: 20190521
  Receipt Date: 20190521
  Transmission Date: 20190711
  Serious: Yes (Hospitalization, Other)
  Sender: FDA-Public Use
  Company Number: CN-SA-2019SA134463

PATIENT
  Age: 66 Year
  Sex: Male
  Weight: 75 kg

DRUGS (6)
  1. ASPIRIN E.C [Concomitant]
     Active Substance: ASPIRIN
     Indication: PLATELET AGGREGATION
  2. INSULIN ASPART [Concomitant]
     Active Substance: INSULIN ASPART
     Indication: BLOOD GLUCOSE
     Dosage: 14 IU IN THE MORNING AND 12 IU AT NIGHT IH
  3. INSULIN ASPART [Concomitant]
     Active Substance: INSULIN ASPART
     Dosage: ADJUSTED TO 10 IU IN THE MORNING AND 8 IU AT NIGHT
  4. IRBESARTAN. [Suspect]
     Active Substance: IRBESARTAN
     Indication: HYPERTENSION
     Dosage: 75 MG, QD
  5. ASPIRIN E.C [Concomitant]
     Active Substance: ASPIRIN
     Indication: CEREBRAL INFARCTION
     Dosage: 100 MG, QD
  6. INSULIN LISPRO RECOMBINANT [Concomitant]
     Active Substance: INSULIN LISPRO
     Indication: DIABETES MELLITUS
     Dosage: 14 IU IN THE MORNING AND 12 IU AT NIGHT AT USUAL

REACTIONS (7)
  - Retinal haemorrhage [Recovering/Resolving]
  - Diabetic nephropathy [Recovering/Resolving]
  - Chronic kidney disease [Unknown]
  - Cardiac discomfort [Unknown]
  - Renal impairment [Unknown]
  - Protein urine [Unknown]
  - Asthenia [Unknown]
